FAERS Safety Report 21905673 (Version 4)
Quarter: 2023Q2

REPORT INFORMATION
  Report Type: Report from Study
  Country: US (occurrence: US)
  Receive Date: 20230124
  Receipt Date: 20230531
  Transmission Date: 20230721
  Serious: Yes (Hospitalization)
  Sender: FDA-Public Use
  Company Number: US-002147023-NVSC2023US015902

PATIENT
  Sex: Male
  Weight: 90.71 kg

DRUGS (3)
  1. TREPROSTINIL [Suspect]
     Active Substance: TREPROSTINIL
     Indication: Pulmonary arterial hypertension
     Dosage: 81 NG/KG/MIN, CONT
     Route: 058
     Dates: start: 20220922
  2. TREPROSTINIL [Suspect]
     Active Substance: TREPROSTINIL
     Dosage: 81 NG/KG/MIN, CONT
     Route: 058
  3. TREPROSTINIL [Suspect]
     Active Substance: TREPROSTINIL
     Dosage: 81 NG/KG/MIN, CONT
     Route: 058

REACTIONS (3)
  - Hypoxia [Unknown]
  - Weight increased [Unknown]
  - Injection site erythema [Unknown]
